FAERS Safety Report 7122631-0 (Version None)
Quarter: 2010Q4

REPORT INFORMATION
  Report Type: 
  Country: None (occurrence: None)
  Receive Date: 20101124
  Receipt Date: 20101112
  Transmission Date: 20110411
  Serious: Yes (Hospitalization, Other)
  Sender: FDA-Public Use
  Company Number: NO-ELI_LILLY_AND_COMPANY-NO201011003707

PATIENT
  Sex: Male

DRUGS (4)
  1. ZYPADHERA [Suspect]
     Indication: PSYCHOTIC DISORDER
     Dosage: 210 MG, UNKNOWN
     Route: 030
  2. ZYPADHERA [Suspect]
     Dosage: 210 MG, UNKNOWN
     Route: 030
     Dates: start: 20100922, end: 20100922
  3. ZYPADHERA [Suspect]
     Dosage: 210 MG, UNKNOWN
     Route: 030
     Dates: start: 20101013
  4. ZYPREXA [Suspect]
     Indication: PSYCHOTIC DISORDER
     Dosage: 10 MG, UNKNOWN
     Route: 048

REACTIONS (6)
  - ABNORMAL BEHAVIOUR [None]
  - AKATHISIA [None]
  - CONFUSIONAL STATE [None]
  - DIZZINESS [None]
  - SEDATION [None]
  - SOMNOLENCE [None]
